FAERS Safety Report 8485353-X (Version None)
Quarter: 2012Q3

REPORT INFORMATION
  Report Type: 
  Country: None (occurrence: None)
  Receive Date: 20120703
  Receipt Date: 20120621
  Transmission Date: 20120928
  Serious: Yes (Hospitalization)
  Sender: FDA-Public Use
  Company Number: JP-ACTELION-A-CH2012-67722

PATIENT
  Sex: Male
  Weight: 62.5 kg

DRUGS (15)
  1. BETAMETHASONE VALERATE [Concomitant]
  2. CARBOCISTEINE [Concomitant]
  3. OXYGEN [Concomitant]
  4. WARFARIN POTASSIUM [Concomitant]
  5. BERAPROST SODIUM [Concomitant]
  6. SANACTASE [Concomitant]
  7. TRACLEER [Suspect]
     Dosage: 62.5 MG, BID
     Route: 048
     Dates: start: 20100206, end: 20100215
  8. KETOPROFEN [Concomitant]
  9. TRACLEER [Suspect]
     Dosage: 31.25 MG, BID
     Route: 048
     Dates: start: 20090911, end: 20090912
  10. SODIUM GUALENATE [Concomitant]
  11. TRACLEER [Suspect]
     Indication: PULMONARY HYPERTENSION
     Dosage: 62.5 MG, BID
     Route: 048
     Dates: start: 20090913, end: 20091027
  12. TRACLEER [Suspect]
     Dosage: 125 MG, BID
     Route: 048
     Dates: start: 20091028, end: 20100205
  13. AZELNIDIPINE [Concomitant]
  14. URAPIDIL [Concomitant]
  15. OMEPRAZOLE [Concomitant]

REACTIONS (7)
  - ALANINE AMINOTRANSFERASE INCREASED [None]
  - HEPATIC FUNCTION ABNORMAL [None]
  - RENAL FAILURE [None]
  - HYPERURICAEMIA [None]
  - GAMMA-GLUTAMYLTRANSFERASE INCREASED [None]
  - ASPARTATE AMINOTRANSFERASE INCREASED [None]
  - BLOOD ALKALINE PHOSPHATASE INCREASED [None]
